FAERS Safety Report 6810886-9 (Version None)
Quarter: 2010Q2

REPORT INFORMATION
  Report Type: 
  Country: None (occurrence: None)
  Receive Date: 20100630
  Receipt Date: 20100614
  Transmission Date: 20101027
  Serious: No
  Sender: FDA-Public Use
  Company Number: US-PFIZER INC-2009242192

PATIENT
  Sex: Female
  Weight: 68 kg

DRUGS (1)
  1. RELPAX [Suspect]
     Indication: MIGRAINE
     Dosage: 40 MG, UNK
     Route: 048
     Dates: start: 20070701

REACTIONS (4)
  - HEADACHE [None]
  - MIGRAINE [None]
  - SOMNOLENCE [None]
  - VOMITING [None]
